FAERS Safety Report 20305996 (Version 1)
Quarter: 2022Q1

REPORT INFORMATION
  Report Type: Spontaneous
  Country: US (occurrence: None)
  Receive Date: 20220106
  Receipt Date: 20220106
  Transmission Date: 20220423
  Serious: No
  Sender: FDA-Public Use
  Company Number: None

PATIENT
  Sex: Male

DRUGS (1)
  1. CAPECITABINE [Suspect]
     Active Substance: CAPECITABINE
     Indication: Rectosigmoid cancer
     Dosage: 3 TABLETS IN THE AM AND 2 TABLES IN THE PM.;?
     Route: 048
     Dates: start: 20211201

REACTIONS (1)
  - Peripheral swelling [None]
